FAERS Safety Report 5508886-4 (Version None)
Quarter: 2007Q4

REPORT INFORMATION
  Report Type: 
  Country: None (occurrence: None)
  Receive Date: 20071031
  Receipt Date: 20070727
  Transmission Date: 20080405
  Serious: Yes (Other)
  Sender: FDA-Public Use
  Company Number: 200615663BWH

PATIENT
  Sex: Male

DRUGS (1)
  1. NEXAVAR [Suspect]
     Indication: RENAL CELL CARCINOMA STAGE UNSPECIFIED
     Dosage: 400 MG, BID, ORAL
     Route: 048
     Dates: start: 20060101

REACTIONS (1)
  - LOWER GASTROINTESTINAL HAEMORRHAGE [None]
